FAERS Safety Report 26022998 (Version 1)
Quarter: 2025Q4

REPORT INFORMATION
  Report Type: Other
  Country: US (occurrence: US)
  Receive Date: 20251110
  Receipt Date: 20251110
  Transmission Date: 20260117
  Serious: No
  Sender: BAJAJ MEDICAL, LLC
  Company Number: US-Bajaj Medical, LLC-2188256

PATIENT
  Sex: Male

DRUGS (2)
  1. LACTULOSE [Suspect]
     Active Substance: LACTULOSE
     Indication: Ammonia increased
  2. LACTULOSE [Suspect]
     Active Substance: LACTULOSE
     Indication: Liver disorder

REACTIONS (1)
  - Product ineffective [Recovering/Resolving]
